FAERS Safety Report 7048418-5 (Version None)
Quarter: 2010Q4

REPORT INFORMATION
  Report Type: 
  Country: None (occurrence: None)
  Receive Date: 20101015
  Receipt Date: 20101008
  Transmission Date: 20110411
  Serious: Yes (Hospitalization)
  Sender: FDA-Public Use
  Company Number: US-US-EMD SERONO, INC.-7020780

PATIENT
  Sex: Male

DRUGS (7)
  1. REBIF [Suspect]
     Indication: MULTIPLE SCLEROSIS
     Route: 058
     Dates: start: 20090813, end: 20100801
  2. REBIF [Suspect]
     Dates: start: 20100929
  3. METHYLPHENIDATE [Concomitant]
  4. DIAZEPAM [Concomitant]
  5. METHADONE [Concomitant]
  6. OXYCODONE HCL [Concomitant]
  7. BACLOFEN [Concomitant]

REACTIONS (4)
  - HEADACHE [None]
  - MULTIPLE SCLEROSIS RELAPSE [None]
  - PYREXIA [None]
  - RASH [None]
